FAERS Safety Report 9999505 (Version 1)
Quarter: 2014Q1

REPORT INFORMATION
  Report Type: Spontaneous
  Country: GB (occurrence: GB)
  Receive Date: 20140312
  Receipt Date: 20140312
  Transmission Date: 20141002
  Serious: Yes (Other)
  Sender: FDA-Public Use
  Company Number: GB-TEVA-466541ISR

PATIENT
  Age: 33 Year
  Sex: Female

DRUGS (5)
  1. PHENYTOIN [Suspect]
     Indication: TEMPORAL LOBE EPILEPSY
     Route: 048
     Dates: start: 20140201, end: 20140218
  2. BUCCOLAM [Concomitant]
  3. CLOBAZAM [Concomitant]
  4. FLYNN PHARMA PHENYTOIN [Concomitant]
  5. TEGRETOL RETARD [Concomitant]

REACTIONS (7)
  - Balance disorder [Not Recovered/Not Resolved]
  - Coordination abnormal [Not Recovered/Not Resolved]
  - Toxicity to various agents [Not Recovered/Not Resolved]
  - Product substitution issue [Unknown]
  - Joint dislocation [Not Recovered/Not Resolved]
  - Convulsion [Not Recovered/Not Resolved]
  - Areflexia [Not Recovered/Not Resolved]
